FAERS Safety Report 23067745 (Version 2)
Quarter: 2023Q4

REPORT INFORMATION
  Report Type: Spontaneous
  Country: US (occurrence: None)
  Receive Date: 20231016
  Receipt Date: 20231017
  Transmission Date: 20240109
  Serious: No
  Sender: FDA-Public Use
  Company Number: US-ARIS GLOBAL-ADM202209-003103

PATIENT
  Age: 70 Year
  Sex: Female

DRUGS (2)
  1. GOCOVRI [Suspect]
     Active Substance: AMANTADINE
     Indication: Dyskinesia
     Route: 048
     Dates: start: 20220910
  2. GOCOVRI [Suspect]
     Active Substance: AMANTADINE
     Indication: Parkinson^s disease

REACTIONS (7)
  - Depression [Not Recovered/Not Resolved]
  - Insomnia [Not Recovered/Not Resolved]
  - Constipation [Unknown]
  - Sleep disorder [Unknown]
  - Peripheral swelling [Unknown]
  - Dizziness postural [Unknown]
  - Dry mouth [Unknown]
